FAERS Safety Report 17995160 (Version 1)
Quarter: 2020Q3

REPORT INFORMATION
  Report Type: Spontaneous
  Country: HR (occurrence: HR)
  Receive Date: 20200708
  Receipt Date: 20200708
  Transmission Date: 20201103
  Serious: Yes (Disabling)
  Sender: FDA-Public Use
  Company Number: HR-TEVA-2020-HR-1797911

PATIENT
  Age: 66 Year
  Sex: Female

DRUGS (4)
  1. ZOMETA [Concomitant]
     Active Substance: ZOLEDRONIC ACID
     Dosage: ()
     Route: 042
  2. PERJETA [Concomitant]
     Active Substance: PERTUZUMAB
     Indication: HER2 POSITIVE BREAST CANCER
     Dosage: DOCETAXEL + PERTUZUMAB + TRASTUZUMAB REGIMEN ()
     Route: 042
     Dates: start: 20200316, end: 20200513
  3. TRASTUZUMAB. [Concomitant]
     Active Substance: TRASTUZUMAB
     Indication: HER2 POSITIVE BREAST CANCER
     Dosage: DOCETAXEL + PERTUZUMAB + TRASTUZUMAB REGIMEN ()
     Route: 042
     Dates: start: 20200316, end: 20200513
  4. DOCETAXEL. [Suspect]
     Active Substance: DOCETAXEL
     Indication: BREAST CANCER
     Dosage: 160MG/8ML, DOCETAXEL + PERTUZUMAB + TRASTUZUMAB REGIMEN ()
     Route: 042
     Dates: start: 20200316, end: 20200513

REACTIONS (11)
  - Rash papular [Recovering/Resolving]
  - Stomatitis [Recovering/Resolving]
  - Malaise [Not Recovered/Not Resolved]
  - Mucosal erosion [Recovering/Resolving]
  - Decreased appetite [Unknown]
  - Pruritus [Recovering/Resolving]
  - Eastern Cooperative Oncology Group performance status worsened [Unknown]
  - Asthenia [Unknown]
  - Conjunctivitis [Recovering/Resolving]
  - Abdominal pain [Unknown]
  - Dysphagia [Unknown]

NARRATIVE: CASE EVENT DATE: 202004
